FAERS Safety Report 26089552 (Version 1)
Quarter: 2025Q4

REPORT INFORMATION
  Report Type: Spontaneous
  Country: EU (occurrence: EU)
  Receive Date: 20251125
  Receipt Date: 20251125
  Transmission Date: 20260118
  Serious: Yes (Other)
  Sender: MERCK SHARP & DOHME LLC
  Company Number: None

PATIENT
  Age: 52 Year
  Sex: Female
  Weight: 130 kg

DRUGS (7)
  1. KEYTRUDA [Suspect]
     Active Substance: PEMBROLIZUMAB
     Indication: Breast cancer
     Dosage: TIME INTERVAL: CYCLICAL: STRENGTH: 50 MG
     Route: 042
     Dates: start: 202407
  2. DAPAGLIFLOZIN [Concomitant]
     Active Substance: DAPAGLIFLOZIN
     Indication: Arrhythmia induced cardiomyopathy
     Dosage: STRENGTH: 10 MG
     Route: 048
  3. BISOPROLOL FUMARATE [Concomitant]
     Active Substance: BISOPROLOL FUMARATE
     Indication: Hypertension
     Route: 048
  4. ENTRESTO 97 mg/103 mg, film-coated tablet [Concomitant]
     Indication: Arrhythmia induced cardiomyopathy
     Dosage: STRENGTH: 97 MG/103 MG
     Route: 048
  5. TAHOR 10 mg, film-coated tablet [Concomitant]
     Indication: Cardiovascular event prophylaxis
     Dosage: STRENGTH: 10 MG
     Route: 048
  6. ASPIRIN [Concomitant]
     Active Substance: ASPIRIN
     Indication: Cardiovascular event prophylaxis
     Dosage: STRENGTH: 100 MG
     Route: 048
  7. EPLERENONE [Concomitant]
     Active Substance: EPLERENONE
     Indication: Hypertension
     Route: 048

REACTIONS (1)
  - Subacute cutaneous lupus erythematosus [Recovering/Resolving]

NARRATIVE: CASE EVENT DATE: 20241204
